FAERS Safety Report 6805762-1 (Version None)
Quarter: 2010Q2

REPORT INFORMATION
  Report Type: 
  Country: None (occurrence: None)
  Receive Date: 20100628
  Receipt Date: 20100614
  Transmission Date: 20101027
  Serious: Yes (Hospitalization)
  Sender: FDA-Public Use
  Company Number: DE-MYLANLABS-2010S1010498

PATIENT
  Age: 41 Year
  Sex: Female

DRUGS (9)
  1. ZIPRASIDONE HCL [Suspect]
     Indication: SCHIZOAFFECTIVE DISORDER DEPRESSIVE TYPE
     Route: 065
  2. ZIPRASIDONE HCL [Suspect]
     Route: 065
  3. AMITRIPTYLINE [Suspect]
     Indication: SCHIZOAFFECTIVE DISORDER DEPRESSIVE TYPE
     Route: 065
  4. AMITRIPTYLINE [Suspect]
     Route: 065
  5. AMITRIPTYLINE [Suspect]
     Route: 065
  6. EZETIMIBE/SIMVASTATIN [Concomitant]
     Indication: HYPERCHOLESTEROLAEMIA
     Route: 065
  7. LEVOTHYROXINE SODIUM [Concomitant]
     Indication: HYPOTHYROIDISM
     Route: 065
  8. LORAZEPAM [Concomitant]
     Route: 065
  9. CARBAMAZEPINE [Concomitant]
     Route: 065

REACTIONS (3)
  - ATRIOVENTRICULAR BLOCK FIRST DEGREE [None]
  - BUNDLE BRANCH BLOCK LEFT [None]
  - ELECTROCARDIOGRAM QT PROLONGED [None]
